FAERS Safety Report 4656494-X (Version None)
Quarter: 2005Q2

REPORT INFORMATION
  Report Type: 
  Country: None (occurrence: None)
  Receive Date: 20050504
  Receipt Date: 20050422
  Transmission Date: 20051028
  Serious: No
  Sender: FDA-Public Use
  Company Number: 05P-163-0298302-00

PATIENT
  Age: 75 Year
  Sex: Male
  Weight: 89.8122 kg

DRUGS (13)
  1. HUMIRA [Suspect]
     Indication: RHEUMATOID ARTHRITIS
     Dosage: 40 MG, 1 IN 2 WK, SUBCUTANEOUS
     Route: 058
     Dates: start: 20030701
  2. PRANDIN [Concomitant]
  3. FENTANYL [Concomitant]
  4. HYDROXYCHLOROQUINE SULFATE [Concomitant]
  5. NABUMETONE [Concomitant]
  6. PREDNISONE [Concomitant]
  7. RANITIDINE [Concomitant]
  8. LEVOTHYROXINE SODIUM [Concomitant]
  9. TERAZOSIN [Concomitant]
  10. GABAPENTIN [Concomitant]
  11. METHOTREXATE [Concomitant]
  12. SENNOSIDES [Concomitant]
  13. ETODOLAC [Concomitant]

REACTIONS (3)
  - ABDOMINAL STRANGULATED HERNIA [None]
  - ERYTHEMA [None]
  - OEDEMA PERIPHERAL [None]
